FAERS Safety Report 15785078 (Version 1)
Quarter: 2019Q1

REPORT INFORMATION
  Report Type: Spontaneous
  Country: US (occurrence: US)
  Receive Date: 20190103
  Receipt Date: 20190103
  Transmission Date: 20190417
  Serious: No
  Sender: FDA-Public Use
  Company Number: US-PFIZER INC-2019001573

PATIENT
  Age: 67 Year

DRUGS (1)
  1. VIAGRA [Suspect]
     Active Substance: SILDENAFIL CITRATE
     Indication: OESOPHAGEAL DISORDER
     Dosage: 25 MG, 2X/DAY

REACTIONS (1)
  - Drug effective for unapproved indication [Unknown]
